FAERS Safety Report 4819318-3 (Version None)
Quarter: 2005Q4

REPORT INFORMATION
  Report Type: 
  Country: None (occurrence: None)
  Receive Date: 20051103
  Receipt Date: 20051025
  Transmission Date: 20060501
  Serious: Yes (Other)
  Sender: FDA-Public Use
  Company Number: US-ROCHE-422603

PATIENT
  Age: 53 Year
  Sex: Male
  Weight: 144.7 kg

DRUGS (5)
  1. PEGASYS [Suspect]
     Dosage: REPORTED ROUTE: INJ.
     Route: 050
     Dates: start: 20040202, end: 20050202
  2. COPEGUS [Suspect]
     Route: 048
     Dates: start: 20040202, end: 20050202
  3. DIOVAN [Concomitant]
     Route: 048
  4. HYDROCHLOROTHIAZIDE [Concomitant]
     Route: 048
  5. OXYCODONE [Concomitant]
     Indication: PAIN
     Route: 048
     Dates: start: 19950615

REACTIONS (10)
  - ALOPECIA [None]
  - ASTHENIA [None]
  - CONSTIPATION [None]
  - DRUG INEFFECTIVE [None]
  - GINGIVAL INFECTION [None]
  - HAEMATOCHEZIA [None]
  - MOVEMENT DISORDER [None]
  - ORAL INTAKE REDUCED [None]
  - TOOTH INJURY [None]
  - TOOTH LOSS [None]
